FAERS Safety Report 5269042-0 (Version None)
Quarter: 2007Q1

REPORT INFORMATION
  Report Type: 
  Country: None (occurrence: None)
  Receive Date: 20070319
  Receipt Date: 20070228
  Transmission Date: 20070707
  Serious: Yes (Other)
  Sender: FDA-Public Use
  Company Number: 2006UW11874

PATIENT
  Age: 765 Month
  Sex: Female
  Weight: 111.4 kg

DRUGS (5)
  1. SEROQUEL [Suspect]
     Indication: MENTAL DISORDER
     Route: 048
     Dates: start: 20060701, end: 20061101
  2. ZYPREXA [Suspect]
     Route: 048
  3. SOLIAN [Concomitant]
     Dates: start: 20061218
  4. TRAZODONE HCL [Concomitant]
  5. SERTRALINE [Concomitant]

REACTIONS (3)
  - CEREBROVASCULAR ACCIDENT [None]
  - DIABETES MELLITUS [None]
  - MYOCARDIAL INFARCTION [None]
